FAERS Safety Report 8296541-X (Version None)
Quarter: 2012Q2

REPORT INFORMATION
  Report Type: 
  Country: None (occurrence: None)
  Receive Date: 20120418
  Receipt Date: 20120417
  Transmission Date: 20120825
  Serious: Yes (Hospitalization, Other)
  Sender: FDA-Public Use
  Company Number: FR-MERCK-1202FRA00033

PATIENT
  Age: 58 Year
  Sex: Female
  Weight: 76 kg

DRUGS (1)
  1. JANUMET [Suspect]
     Indication: TYPE 2 DIABETES MELLITUS
     Route: 048
     Dates: start: 20101001, end: 20111001

REACTIONS (2)
  - CHOLELITHIASIS [None]
  - PANCREATITIS ACUTE [None]
